FAERS Safety Report 8436335-5 (Version None)
Quarter: 2012Q2

REPORT INFORMATION
  Report Type: 
  Country: None (occurrence: None)
  Receive Date: 20120614
  Receipt Date: 20120609
  Transmission Date: 20120825
  Serious: Yes (Other)
  Sender: FDA-Public Use
  Company Number: US-GILEAD-2012-0056449

PATIENT
  Sex: Male

DRUGS (1)
  1. LETAIRIS [Suspect]
     Indication: PRODUCT USED FOR UNKNOWN INDICATION
     Dosage: 10 MG, UNK
     Route: 048
     Dates: start: 20120531

REACTIONS (7)
  - DELIRIUM [None]
  - EYELID OEDEMA [None]
  - SWELLING FACE [None]
  - FLUSHING [None]
  - OCULAR HYPERAEMIA [None]
  - PALPITATIONS [None]
  - HEADACHE [None]
